FAERS Safety Report 4555693-5 (Version None)
Quarter: 2005Q1

REPORT INFORMATION
  Report Type: 
  Country: None (occurrence: None)
  Receive Date: 20050105
  Receipt Date: 20040917
  Transmission Date: 20050727
  Serious: No
  Sender: FDA-Public Use
  Company Number: SU-2004-002694

PATIENT
  Age: 72 Year
  Sex: Male
  Weight: 72.5755 kg

DRUGS (10)
  1. BENICAR HCT [Suspect]
     Indication: HYPERTENSION
     Dosage: 40.125 MG QD PO
     Route: 048
     Dates: start: 20040323
  2. NATURA LAX 2 [Suspect]
     Indication: CONSTIPATION
     Dates: end: 20040101
  3. NADOLOL [Concomitant]
  4. LUMIGAN [Concomitant]
  5. NITROGLYCERIN [Concomitant]
  6. ECOTRIN [Concomitant]
  7. MELATONIN [Concomitant]
  8. GINKGO [Concomitant]
  9. DHEA [Concomitant]
  10. GARLIC [Concomitant]

REACTIONS (2)
  - DIARRHOEA [None]
  - MELANOSIS COLI [None]
